FAERS Safety Report 5739265-2 (Version None)
Quarter: 2008Q2

REPORT INFORMATION
  Report Type: 
  Country: None (occurrence: None)
  Receive Date: 20080515
  Receipt Date: 20080508
  Transmission Date: 20081010
  Serious: Yes (Other)
  Sender: FDA-Public Use
  Company Number: JP-AVENTIS-200810626JP

PATIENT
  Sex: Female

DRUGS (2)
  1. LANTUS [Suspect]
     Dosage: DOSE: 12 UNITS
     Route: 064
     Dates: start: 20050314
  2. PENFILL R [Concomitant]
     Route: 064

REACTIONS (8)
  - ABDOMINAL DISTENSION [None]
  - BLOOD BILIRUBIN INCREASED [None]
  - CALLUS FORMATION DELAYED [None]
  - DRUG EXPOSURE DURING PREGNANCY [None]
  - FEEDING DISORDER NEONATAL [None]
  - HYPOCALCAEMIA [None]
  - HYPOGLYCAEMIA NEONATAL [None]
  - HYPOTHYROIDISM [None]
